FAERS Safety Report 23886983 (Version 1)
Quarter: 2024Q2

REPORT INFORMATION
  Report Type: Spontaneous
  Country: TR (occurrence: TR)
  Receive Date: 20240523
  Receipt Date: 20240523
  Transmission Date: 20240716
  Serious: Yes (Hospitalization, Other)
  Sender: FDA-Public Use
  Company Number: TR-NOVOPROD-1223882

PATIENT
  Sex: Female
  Weight: 80 kg

DRUGS (3)
  1. INSULIN ASPART\INSULIN DEGLUDEC [Suspect]
     Active Substance: INSULIN ASPART\INSULIN DEGLUDEC
     Indication: Type 1 diabetes mellitus
     Dosage: 40 IU, BID
     Route: 058
  2. BETANORM [GLICLAZIDE] [Concomitant]
     Indication: Type 1 diabetes mellitus
     Dosage: 60 MG, BID
  3. JANUMET [Concomitant]
     Active Substance: METFORMIN HYDROCHLORIDE\SITAGLIPTIN PHOSPHATE
     Indication: Type 1 diabetes mellitus
     Dosage: 50/1000 MG  2*1

REACTIONS (1)
  - Uterine cancer [Recovered/Resolved]
